FAERS Safety Report 5648477-8 (Version None)
Quarter: 2008Q1

REPORT INFORMATION
  Report Type: 
  Country: None (occurrence: None)
  Receive Date: 20080131
  Receipt Date: 20071215
  Transmission Date: 20080703
  Serious: No
  Sender: FDA-Public Use
  Company Number: US200708000975

PATIENT
  Age: 72 Year
  Sex: Male
  Weight: 117 kg

DRUGS (7)
  1. BYETTA [Suspect]
     Indication: TYPE 2 DIABETES MELLITUS
     Dosage: 5 UG, 2/D, SUBCUTANEOUS ; 10 UG, 2/D, SUBCUTANEOUS ; 5 UG, 2/D, SUBCUTANEOUS
     Route: 058
     Dates: start: 20070101, end: 20070101
  2. BYETTA [Suspect]
     Indication: TYPE 2 DIABETES MELLITUS
     Dosage: 5 UG, 2/D, SUBCUTANEOUS ; 10 UG, 2/D, SUBCUTANEOUS ; 5 UG, 2/D, SUBCUTANEOUS
     Route: 058
     Dates: start: 20070101, end: 20070101
  3. BYETTA [Suspect]
     Indication: TYPE 2 DIABETES MELLITUS
     Dosage: 5 UG, 2/D, SUBCUTANEOUS ; 10 UG, 2/D, SUBCUTANEOUS ; 5 UG, 2/D, SUBCUTANEOUS
     Route: 058
     Dates: start: 20070101, end: 20071101
  4. BYETTA [Suspect]
  5. GLIPIZIDE [Concomitant]
  6. METFORMIN HCL [Concomitant]
  7. POTASSIUM CHLORIDE (POTASSIUM CHLORIDE UNKNOWN MANUFACTURER) [Concomitant]

REACTIONS (9)
  - CONSTIPATION [None]
  - DECREASED APPETITE [None]
  - DYSGEUSIA [None]
  - DYSPEPSIA [None]
  - ERUCTATION [None]
  - FLATULENCE [None]
  - FOOD CRAVING [None]
  - NAUSEA [None]
  - WEIGHT DECREASED [None]
